FAERS Safety Report 7377573-2 (Version None)
Quarter: 2011Q1

REPORT INFORMATION
  Report Type: 
  Country: None (occurrence: None)
  Receive Date: 20110328
  Receipt Date: 20110323
  Transmission Date: 20110831
  Serious: Yes (Death)
  Sender: FDA-Public Use
  Company Number: JP-SANOFI-AVENTIS-2011SA018176

PATIENT
  Age: 76 Year
  Sex: Female

DRUGS (1)
  1. ELPLAT [Suspect]

REACTIONS (1)
  - ILEUS [None]
